FAERS Safety Report 17847489 (Version 2)
Quarter: 2020Q2

REPORT INFORMATION
  Report Type: Spontaneous
  Country: US (occurrence: US)
  Receive Date: 20200601
  Receipt Date: 20200602
  Transmission Date: 20200714
  Serious: Yes (Other)
  Sender: FDA-Public Use
  Company Number: US-JNJFOC-20200527968

PATIENT

DRUGS (1)
  1. PARACETAMOL [Suspect]
     Active Substance: ACETAMINOPHEN
     Indication: PREMEDICATION
     Dosage: 4.6 TO 15 ML (15 MG/KG APPROXIMATELY 30 TO 60 MINUTES)
     Route: 048

REACTIONS (5)
  - Off label use [Unknown]
  - Vomiting [Unknown]
  - Airway complication of anaesthesia [Unknown]
  - Product use in unapproved indication [Unknown]
  - Therapeutic response unexpected [Unknown]
